FAERS Safety Report 4739030-9 (Version None)
Quarter: 2005Q3

REPORT INFORMATION
  Report Type: 
  Country: None (occurrence: None)
  Receive Date: 20050801
  Receipt Date: 20041230
  Transmission Date: 20060218
  Serious: Yes (Other)
  Sender: FDA-Public Use
  Company Number: 211436

PATIENT
  Age: 75 Year
  Sex: Female
  Weight: 76.6 kg

DRUGS (13)
  1. RITUXAN [Suspect]
     Indication: LYMPHOMA
     Dosage: 248 MG, SINGLE, INTRAVENOUS
     Route: 042
     Dates: start: 20041228, end: 20041228
  2. RITUXAN [Suspect]
  3. ACETAMINOPHEN [Concomitant]
  4. BENADRYL [Concomitant]
  5. ZETIA [Concomitant]
  6. AGGRENOX [Concomitant]
  7. LIPITOR [Concomitant]
  8. TOPROL-XL [Concomitant]
  9. FLOVENT [Concomitant]
  10. FLOMAX [Concomitant]
  11. AMBIEN [Concomitant]
  12. ALLOPURINOL [Concomitant]
  13. PREDNISONE [Concomitant]

REACTIONS (1)
  - INFUSION RELATED REACTION [None]
